FAERS Safety Report 16771044 (Version 1)
Quarter: 2019Q3

REPORT INFORMATION
  Report Type: Spontaneous
  Country: GB (occurrence: GB)
  Receive Date: 20190904
  Receipt Date: 20190904
  Transmission Date: 20191005
  Serious: Yes (Hospitalization)
  Sender: FDA-Public Use
  Company Number: GB-TEVA-2019-GB-1100784

PATIENT
  Age: 90 Year
  Sex: Female

DRUGS (9)
  1. DERMOL [Concomitant]
     Active Substance: BENZALKONIUM CHLORIDE\CHLORHEXIDINE HYDROCHLORIDE\ISOPROPYL MYRISTATE\PARAFFIN
     Dosage: APPLY TO THE SKIN LIBERALLY AND FREQUENTLY, OR USE AS SOAP SUBSTITUTE
     Dates: start: 20181127
  2. FUROSEMIDE. [Concomitant]
     Active Substance: FUROSEMIDE
     Dosage: 40 MILLIGRAM DAILY; MORNING
     Dates: start: 20181001
  3. PARACETAMOL [Concomitant]
     Active Substance: ACETAMINOPHEN
     Indication: PAIN
     Dosage: 2 UP TO 4 TIMES DAILY
     Dates: start: 20181031
  4. INDAPAMIDE. [Concomitant]
     Active Substance: INDAPAMIDE
     Dosage: 2.5 MILLIGRAM DAILY; MORNING?DISCONTINUED
  5. FEXOFENADINE [Concomitant]
     Active Substance: FEXOFENADINE HYDROCHLORIDE
     Dosage: 180 MILLIGRAM DAILY;
     Dates: start: 20181030
  6. TETRACYCLINE [Concomitant]
     Active Substance: TETRACYCLINE
     Dosage: 1000 MILLIGRAM DAILY;
     Dates: start: 20181030
  7. HYDROCORTISONE. [Concomitant]
     Active Substance: HYDROCORTISONE
     Dosage: 2 DOSAGE FORMS DAILY; APPLY THINLY
     Dates: start: 20181030
  8. CLOBETASONE [Concomitant]
     Active Substance: CLOBETASONE
     Dosage: APPLY THINLY ONCE OR TWICE A DAY
     Dates: start: 20181025
  9. WARFARIN [Suspect]
     Active Substance: WARFARIN
     Dosage: 4MG MON, WED AND FRI 3MG REST OF WEEK
     Dates: start: 20181001

REACTIONS (1)
  - Epistaxis [Recovered/Resolved]
